FAERS Safety Report 23262470 (Version 1)
Quarter: 2023Q4

REPORT INFORMATION
  Report Type: Spontaneous
  Country: NL (occurrence: NL)
  Receive Date: 20231205
  Receipt Date: 20231205
  Transmission Date: 20240109
  Serious: Yes (Hospitalization, Other)
  Sender: FDA-Public Use
  Company Number: None

PATIENT
  Age: 82 Year
  Sex: Male
  Weight: 69 kg

DRUGS (1)
  1. ELIQUIS [Suspect]
     Active Substance: APIXABAN
     Indication: Cardiac fibrillation
     Dosage: FREQUENCY TIME: 12 HOUR
     Dates: start: 20231102, end: 20231114

REACTIONS (3)
  - Muscle haemorrhage [Recovering/Resolving]
  - Abdominal pain [Recovering/Resolving]
  - Haematoma [Recovering/Resolving]
